FAERS Safety Report 7116755-1 (Version None)
Quarter: 2010Q4

REPORT INFORMATION
  Report Type: 
  Country: None (occurrence: None)
  Receive Date: 20101122
  Receipt Date: 20101110
  Transmission Date: 20110411
  Serious: Yes (Hospitalization)
  Sender: FDA-Public Use
  Company Number: GXKR2010US12695

PATIENT
  Age: 33 Year
  Sex: Female

DRUGS (2)
  1. METHYLENE BLUE (NGX) [Interacting]
     Indication: DEPRESSION
     Dosage: 7 MG/KG
     Route: 065
  2. SERTRALINE (NGX) [Suspect]
     Indication: DEPRESSION
     Route: 065

REACTIONS (8)
  - CLONUS [None]
  - CONFUSIONAL STATE [None]
  - DRUG INTERACTION [None]
  - LETHARGY [None]
  - MUSCLE RIGIDITY [None]
  - NYSTAGMUS [None]
  - SEROTONIN SYNDROME [None]
  - TREMOR [None]
